FAERS Safety Report 23324069 (Version 1)
Quarter: 2023Q4

REPORT INFORMATION
  Report Type: Spontaneous
  Country: MY (occurrence: MY)
  Receive Date: 20231221
  Receipt Date: 20231221
  Transmission Date: 20240109
  Serious: Yes (Other)
  Sender: FDA-Public Use
  Company Number: MY-BAXTER-2023BAX038385

PATIENT
  Age: 37 Year
  Sex: Female

DRUGS (2)
  1. SEVOFLURANE [Suspect]
     Active Substance: SEVOFLURANE
     Indication: Ludwig angina
     Dosage: 1 DF (DOSAGE FORM) AT AN UNSPECIFIED FREQUENCY (ROUTE: INHALATION)
     Route: 055
  2. PROPOFOL [Suspect]
     Active Substance: PROPOFOL
     Indication: Sedative therapy
     Dosage: 100 MG (MILLIGRAMS) AT AN UNSPECIFIED FREQUENCY
     Route: 042

REACTIONS (1)
  - Angioedema [Not Recovered/Not Resolved]
